FAERS Safety Report 8458068-1 (Version None)
Quarter: 2012Q2

REPORT INFORMATION
  Report Type: 
  Country: None (occurrence: None)
  Receive Date: 20120622
  Receipt Date: 20120620
  Transmission Date: 20120825
  Serious: Yes (Hospitalization, Other)
  Sender: FDA-Public Use
  Company Number: DE-BAYER-2012-061152

PATIENT
  Age: 32 Year
  Sex: Female

DRUGS (1)
  1. GADAVIST [Suspect]
     Indication: PRODUCT USED FOR UNKNOWN INDICATION
     Dosage: 15 ML, ONCE
     Dates: start: 20120518, end: 20120518

REACTIONS (4)
  - PRURITUS GENERALISED [None]
  - LOCALISED OEDEMA [None]
  - SWELLING FACE [None]
  - DYSPNOEA [None]
